FAERS Safety Report 6768822-X (Version None)
Quarter: 2010Q2

REPORT INFORMATION
  Report Type: 
  Country: None (occurrence: None)
  Receive Date: 20100611
  Receipt Date: 20100531
  Transmission Date: 20101027
  Serious: Yes (Hospitalization)
  Sender: FDA-Public Use
  Company Number: 1000014376

PATIENT
  Age: 57 Year
  Sex: Female

DRUGS (9)
  1. ESCITALOPRAM (ESCITALOPRAM OXALATE) (TABLETS) [Suspect]
     Indication: DEPRESSION
     Dosage: 5 MG (5 MG, 1 IN 1 D), ORAL
     Route: 048
     Dates: start: 20100510, end: 20100515
  2. GLUCOR [Concomitant]
  3. GLICLAZIDE [Concomitant]
  4. BECLOMETHASONE DIPROPIONATE [Concomitant]
  5. RAMIPRIL [Concomitant]
  6. PRAZOSIN HCL [Concomitant]
  7. LANTUS [Concomitant]
  8. PREVISCAN [Concomitant]
  9. ALTEIS [Concomitant]

REACTIONS (8)
  - ASTHENIA [None]
  - CONDITION AGGRAVATED [None]
  - CREATININE RENAL CLEARANCE DECREASED [None]
  - DIZZINESS [None]
  - HEADACHE [None]
  - HYPERKALAEMIA [None]
  - HYPONATRAEMIA [None]
  - VISUAL IMPAIRMENT [None]
